FAERS Safety Report 15689977 (Version 7)
Quarter: 2019Q4

REPORT INFORMATION
  Report Type: Spontaneous
  Country: US (occurrence: US)
  Receive Date: 20181205
  Receipt Date: 20191209
  Transmission Date: 20200122
  Serious: Yes (Other)
  Sender: FDA-Public Use
  Company Number: US-PFIZER INC-2018496359

PATIENT
  Age: 50 Year
  Sex: Male
  Weight: 98 kg

DRUGS (38)
  1. LYRICA [Suspect]
     Active Substance: PREGABALIN
     Indication: SPINAL PAIN
     Dosage: 2 DF, 1X/DAY [ 2 CAPSULES IN THE EVENING]
     Dates: start: 20181003
  2. LYRICA [Suspect]
     Active Substance: PREGABALIN
     Dosage: 4 DF, DAILY [3 CAPSULES AT NIGHT AND ONE IN THE MORNING]
     Dates: start: 20181016
  3. LYRICA [Suspect]
     Active Substance: PREGABALIN
     Dosage: 600 MG, DAILY (150MG (1)-AM, (1)-12 PM-4 PM, (2) AT BED TIME)
     Route: 048
  4. LYRICA [Suspect]
     Active Substance: PREGABALIN
     Dosage: 150 MG, 2X/DAY
     Route: 048
     Dates: start: 20180910
  5. BAYER ASPIRIN [Concomitant]
     Active Substance: ASPIRIN
     Dosage: 81 MG, DAILY
     Route: 048
     Dates: start: 20160110
  6. TAMSULOSIN HCL [Concomitant]
     Active Substance: TAMSULOSIN HYDROCHLORIDE
     Dosage: 0.4 MG, 2X/DAY
     Route: 048
     Dates: start: 20170301
  7. LYRICA [Suspect]
     Active Substance: PREGABALIN
     Dosage: 150 MG, 4X/DAY
     Route: 048
     Dates: start: 20191107
  8. DULCOLAX (BISACODYL) [Concomitant]
     Active Substance: BISACODYL
     Dosage: 10 MG, DAILY
     Route: 048
  9. GABAPENTIN. [Concomitant]
     Active Substance: GABAPENTIN
     Indication: SMALL FIBRE NEUROPATHY
     Dosage: 600 MG, 3X/DAY, (300MG CAPSULE 2 ORAL THREE TIMES DAILY)
     Route: 048
     Dates: start: 20171201
  10. PAMELOR [Concomitant]
     Active Substance: NORTRIPTYLINE HYDROCHLORIDE
     Dosage: 75 MG, 1X/DAY, [75MG CAPSULE I (ONE) ORAL Q HS]
     Route: 048
     Dates: start: 20171201
  11. LYRICA [Suspect]
     Active Substance: PREGABALIN
     Indication: NEUROPATHY PERIPHERAL
     Dosage: 600 MG, DAILY [1 CAPSULES BY MOUTH IN THE MORNING, AND THREE CAPSULES BY MOUTH IN THE EVENING]
     Route: 048
     Dates: start: 20180910
  12. BAYER ASPIRIN [Concomitant]
     Active Substance: ASPIRIN
     Dosage: UNK
     Dates: start: 20160210
  13. COLACE [Concomitant]
     Active Substance: DOCUSATE SODIUM
     Dosage: 100 MG, AS NEEDED
     Route: 048
  14. ALLEGRA ALLERGY [Concomitant]
     Active Substance: FEXOFENADINE HYDROCHLORIDE
     Dosage: 180 MG, DAILY
     Route: 048
  15. NORTRIPTYLINE HCL [Concomitant]
     Active Substance: NORTRIPTYLINE HYDROCHLORIDE
     Indication: PAIN
     Dosage: 75 MG, 1X/DAY
     Route: 048
     Dates: start: 201711
  16. NORTRIPTYLINE HCL [Concomitant]
     Active Substance: NORTRIPTYLINE HYDROCHLORIDE
     Indication: SMALL FIBRE NEUROPATHY
     Dosage: UNK
     Dates: start: 20180220
  17. OMEPRAZOLE. [Concomitant]
     Active Substance: OMEPRAZOLE
     Dosage: 40 MG, DAILY
     Route: 048
     Dates: start: 20180701
  18. LYRICA [Suspect]
     Active Substance: PREGABALIN
     Dosage: 600 MG, DAILY [(QAM (EVERY MORNING) AND 3 QPM (EVERY NIGHT)]
     Route: 048
     Dates: start: 20191031
  19. BECONASE AQ [Concomitant]
     Active Substance: BECLOMETHASONE DIPROPIONATE MONOHYDRATE
     Dosage: 42 UG, AS NEEDED
  20. COD LIVER OIL [Concomitant]
     Active Substance: COD LIVER OIL
     Dosage: 2 DF, DAILY (10000-400IU CAPSULE 2 ORAL DAILY)
     Route: 048
  21. LISINOPRIL. [Concomitant]
     Active Substance: LISINOPRIL
     Dosage: 5 MG, DAILY
     Route: 048
     Dates: start: 20170301
  22. MIRALAX [Concomitant]
     Active Substance: POLYETHYLENE GLYCOL 3350
     Dosage: 2 DF, AS NEEDED (DAILY)
     Route: 048
     Dates: start: 20180821
  23. NORTRIPTYLINE HCL [Concomitant]
     Active Substance: NORTRIPTYLINE HYDROCHLORIDE
     Dosage: 75 MG, 1X/DAY, [AT BEDTIME]
     Route: 048
  24. LYRICA [Suspect]
     Active Substance: PREGABALIN
     Indication: POLYNEUROPATHY
     Dosage: 1 DF, 2X/DAY [ONE CAPSULE IN THE MORNING AND EVENING]
  25. AMLODIPINE BESYLATE. [Concomitant]
     Active Substance: AMLODIPINE BESYLATE
     Dosage: 10 MG, DAILY
     Route: 048
     Dates: start: 20160301
  26. ATORVASTATIN [Concomitant]
     Active Substance: ATORVASTATIN
     Dosage: 80 MG, 1X/DAY
     Dates: start: 20190723
  27. ASPIRIN 81 [Concomitant]
     Active Substance: ASPIRIN
     Dosage: 81 MG, DAILY
     Route: 048
  28. ALLERGY [DIPHENHYDRAMINE HYDROCHLORIDE] [Concomitant]
     Dosage: 10 MG, DAILY
     Route: 048
     Dates: start: 20160104
  29. MIRALAX [Concomitant]
     Active Substance: POLYETHYLENE GLYCOL 3350
     Dosage: UNK, AS NEEDED
     Route: 048
  30. APPLE CIDER VINEGAR [Concomitant]
     Active Substance: APPLE CIDER VINEGAR
     Dosage: 1500 MG, DAILY
     Route: 048
  31. ROSUVASTATIN CALCIUM. [Concomitant]
     Active Substance: ROSUVASTATIN CALCIUM
     Dosage: 40 MG, DAILY
     Route: 048
     Dates: start: 20160220
  32. SPIRONOLACTONE. [Concomitant]
     Active Substance: SPIRONOLACTONE
     Dosage: 25 MG, 2X/DAY
     Route: 048
  33. TAMSULOSIN HCL [Concomitant]
     Active Substance: TAMSULOSIN HYDROCHLORIDE
     Dosage: 0.4 MG, DAILY
     Route: 048
  34. TERAZOSIN HCL [Concomitant]
     Active Substance: TERAZOSIN HYDROCHLORIDE
     Dosage: 2 MG, DAILY
     Route: 048
  35. LYRICA [Suspect]
     Active Substance: PREGABALIN
     Dosage: 150 MG, 4X/DAY (1 IN MORNING ORAL 3 IN THE EVENING )
     Dates: start: 20180910
  36. GARLIQUE [Concomitant]
     Active Substance: GARLIC
     Dosage: 400 MG, DAILY
     Route: 048
  37. FLUTICASONE PROPIONATE. [Concomitant]
     Active Substance: FLUTICASONE PROPIONATE
     Dosage: 50 UG, UNK [50MCG/ ACT SUSPENSION 1 NASAL AS DIRECTED]
     Route: 045
     Dates: start: 20181001
  38. ADVIL [IBUPROFEN] [Concomitant]
     Active Substance: IBUPROFEN
     Dosage: 200 MG, AS NEEDED
     Route: 048

REACTIONS (24)
  - Product use issue [Unknown]
  - Nocturia [Unknown]
  - Pain [Not Recovered/Not Resolved]
  - Limb discomfort [Not Recovered/Not Resolved]
  - Hypoaesthesia [Not Recovered/Not Resolved]
  - Pain in extremity [Recovering/Resolving]
  - Memory impairment [Unknown]
  - Neuropathy peripheral [Unknown]
  - Polyuria [Unknown]
  - Intentional product misuse [Unknown]
  - Body mass index abnormal [Unknown]
  - Chronic kidney disease [Unknown]
  - Pruritus [Recovered/Resolved]
  - Back pain [Unknown]
  - Urinary retention [Not Recovered/Not Resolved]
  - Weight decreased [Recovered/Resolved]
  - Essential hypertension [Unknown]
  - Abdominal hernia [Unknown]
  - Weight increased [Unknown]
  - Skin cancer [Recovered/Resolved]
  - Pollakiuria [Unknown]
  - Insomnia [Not Recovered/Not Resolved]
  - Carpal tunnel syndrome [Unknown]
  - Peripheral coldness [Unknown]

NARRATIVE: CASE EVENT DATE: 20100201
